FAERS Safety Report 4629472-4 (Version None)
Quarter: 2005Q2

REPORT INFORMATION
  Report Type: 
  Country: None (occurrence: None)
  Receive Date: 20050405
  Receipt Date: 20050321
  Transmission Date: 20051028
  Serious: Yes (Life-Threatening, Hospitalization)
  Sender: FDA-Public Use
  Company Number: PHBS2005TR03270

PATIENT
  Age: 77 Year
  Sex: Female

DRUGS (1)
  1. VISUDYNE [Suspect]
     Dates: start: 20050305, end: 20050305

REACTIONS (8)
  - ABNORMAL BEHAVIOUR [None]
  - ANAPHYLACTIC SHOCK [None]
  - ASTHENIA [None]
  - CARDIAC ARREST [None]
  - CONFUSIONAL STATE [None]
  - FEAR [None]
  - INFUSION RELATED REACTION [None]
  - SYNCOPE VASOVAGAL [None]
